FAERS Safety Report 15598710 (Version 1)
Quarter: 2018Q4

REPORT INFORMATION
  Report Type: Spontaneous
  Country: IE (occurrence: IE)
  Receive Date: 20181108
  Receipt Date: 20181108
  Transmission Date: 20190205
  Serious: Yes (Hospitalization, Other)
  Sender: FDA-Public Use
  Company Number: IE-BEH-2018096568

PATIENT
  Age: 71 Year
  Sex: Female

DRUGS (1)
  1. RESPREEZA [Suspect]
     Active Substance: .ALPHA.1-PROTEINASE INHIBITOR HUMAN
     Indication: ALPHA-1 ANTI-TRYPSIN DEFICIENCY
     Dosage: UNK UNK, QW
     Route: 042
     Dates: start: 20161019

REACTIONS (4)
  - Dyspnoea [Unknown]
  - Laboratory test abnormal [Unknown]
  - Abdominal distension [Unknown]
  - Joint swelling [Unknown]

NARRATIVE: CASE EVENT DATE: 20181030
